FAERS Safety Report 4286295-6 (Version None)
Quarter: 2004Q1

REPORT INFORMATION
  Report Type: 
  Country: None (occurrence: None)
  Receive Date: 20040115
  Receipt Date: 20021202
  Transmission Date: 20041129
  Serious: Yes (Death)
  Sender: FDA-Public Use
  Company Number: NSADSS2002044435

PATIENT
  Age: 79 Year
  Sex: Female

DRUGS (2)
  1. DOXIL [Suspect]
     Indication: MALIGNANT PERITONEAL NEOPLASM
     Dosage: SEE IMAGE
     Route: 041
     Dates: start: 19990818, end: 20000101
  2. DOXIL [Suspect]
     Indication: MALIGNANT PERITONEAL NEOPLASM
     Dosage: SEE IMAGE
     Route: 041
     Dates: start: 20000101, end: 20000531

REACTIONS (1)
  - CONDITION AGGRAVATED [None]
